FAERS Safety Report 8764061 (Version 1)
Quarter: 2012Q4

REPORT INFORMATION
  Report Type: 
  Country: DE (occurrence: DE)
  Receive Date: 20120831
  Receipt Date: 20120831
  Transmission Date: 20130627
  Serious: Yes (Hospitalization)
  Sender: FDA-Public Use
  Company Number: DE-AMGEN-UK059122

PATIENT
  Age: 65 Year
  Sex: Female
  Weight: 63 kg

DRUGS (2)
  1. ARANESP [Suspect]
     Indication: ANAEMIA OF MALIGNANT DISEASE
     Dosage: 300 mug, qwk
     Route: 058
     Dates: start: 20030612, end: 20030618
  2. IRINOTECAN [Concomitant]
     Dosage: UNK UNK, UNK
     Dates: start: 200303

REACTIONS (3)
  - Tumour associated fever [Recovered/Resolved]
  - Staphylococcal infection [Recovered/Resolved]
  - Gingivitis [Unknown]
